FAERS Safety Report 20814361 (Version 1)
Quarter: 2022Q2

REPORT INFORMATION
  Report Type: Spontaneous
  Country: US (occurrence: US)
  Receive Date: 20220511
  Receipt Date: 20220511
  Transmission Date: 20220720
  Serious: No
  Sender: FDA-Public Use
  Company Number: US-PFIZER INC-202200570507

PATIENT
  Age: 53 Year
  Sex: Female

DRUGS (2)
  1. IBRANCE [Interacting]
     Active Substance: PALBOCICLIB
     Dosage: 125 MG
  2. TRAMADOL [Interacting]
     Active Substance: TRAMADOL
     Dosage: UNK

REACTIONS (2)
  - Drug interaction [Unknown]
  - Tinnitus [Not Recovered/Not Resolved]
